FAERS Safety Report 5781504-6 (Version None)
Quarter: 2008Q2

REPORT INFORMATION
  Report Type: 
  Country: None (occurrence: None)
  Receive Date: 20080623
  Receipt Date: 20080327
  Transmission Date: 20081010
  Serious: No
  Sender: FDA-Public Use
  Company Number: US-ASTRAZENECA-2008UW06154

PATIENT
  Age: 45 Year
  Sex: Female

DRUGS (4)
  1. ENTOCORT EC [Suspect]
     Indication: CROHN'S DISEASE
     Route: 048
  2. VICODIN [Concomitant]
  3. EVENING PRIMROSE [Concomitant]
  4. OMEGA 369 [Concomitant]

REACTIONS (3)
  - FEELING ABNORMAL [None]
  - GASTRIC DISORDER [None]
  - NAUSEA [None]
